FAERS Safety Report 19508919 (Version 2)
Quarter: 2021Q3

REPORT INFORMATION
  Report Type: Spontaneous
  Country: JP (occurrence: JP)
  Receive Date: 20210709
  Receipt Date: 20210906
  Transmission Date: 20211014
  Serious: Yes (Death, Other)
  Sender: FDA-Public Use
  Company Number: NVSJ2021JP010564

PATIENT
  Age: 56 Year
  Sex: Male

DRUGS (3)
  1. AMIODARON [Concomitant]
     Active Substance: AMIODARONE
     Dosage: 100 MG
     Route: 065
  2. AMIODARON [Concomitant]
     Active Substance: AMIODARONE
     Indication: PRODUCT USED FOR UNKNOWN INDICATION
     Dosage: 200 MG
     Route: 065
  3. ENTRESTO [Suspect]
     Active Substance: SACUBITRIL\VALSARTAN
     Indication: CARDIAC FAILURE
     Dosage: 400 MG
     Route: 048

REACTIONS (2)
  - Death [Fatal]
  - Fall [Fatal]
